FAERS Safety Report 4642199-8 (Version None)
Quarter: 2005Q2

REPORT INFORMATION
  Report Type: 
  Country: None (occurrence: None)
  Receive Date: 20050422
  Receipt Date: 20041221
  Transmission Date: 20051028
  Serious: Yes (Hospitalization, Other)
  Sender: FDA-Public Use
  Company Number: 200419753US

PATIENT
  Sex: Female
  Weight: 75 kg

DRUGS (26)
  1. DDAVP [Suspect]
     Indication: ENURESIS
     Route: 048
     Dates: start: 20041122, end: 20041128
  2. LIPITOR [Concomitant]
     Indication: BLOOD CHOLESTEROL
     Route: 048
     Dates: start: 20021001
  3. TOPROL-XL [Concomitant]
     Indication: BLOOD PRESSURE
     Route: 048
     Dates: start: 20031101
  4. PERCOCET [Concomitant]
     Indication: BACK PAIN
     Route: 048
     Dates: start: 20030801
  5. ALLOPURINOL [Concomitant]
     Indication: BLOOD URIC ACID
     Route: 048
     Dates: start: 20031101, end: 20041221
  6. SYNTHROID [Concomitant]
     Indication: HYPOTHYROIDISM
     Route: 048
     Dates: start: 19900101
  7. MICRO-K [Concomitant]
     Indication: BLOOD POTASSIUM DECREASED
     Route: 048
     Dates: start: 20000101, end: 20041209
  8. HYDROCHLOROTHIAZIDE [Concomitant]
     Indication: BLOOD PRESSURE
     Route: 048
     Dates: start: 20020101, end: 20041209
  9. DETROL [Concomitant]
     Indication: MICTURITION URGENCY
     Route: 048
     Dates: start: 20020101
  10. ACIPHEX [Concomitant]
     Indication: GASTROOESOPHAGEAL REFLUX DISEASE
     Route: 048
     Dates: start: 20020101
  11. UNIVASC [Concomitant]
     Indication: BLOOD PRESSURE
     Route: 048
  12. MOBIC [Concomitant]
     Indication: ARTHRITIS
     Route: 048
     Dates: start: 20041201
  13. OMEGA 3 [Concomitant]
  14. VITAMIN C [Concomitant]
  15. VITAMIN E [Concomitant]
  16. VITAMIN B COMPLEX CAP [Concomitant]
  17. CALCIUM MAGNESIUM ZINC [Concomitant]
     Dosage: DOSE: 1000/400/15
  18. ASPIRIN [Concomitant]
  19. IRON SUPPLEMENT [Concomitant]
  20. FLUTICASONE PROPIONATE [Concomitant]
     Dosage: DOSE: 2 SQUIRTS
  21. DOCUSATE SODIUM [Concomitant]
  22. ZOLPIDEM TARTRATE [Concomitant]
     Dosage: DOSE: 5-10
  23. PANTOPRAZOLE SODIUM [Concomitant]
  24. FOLIC ACID [Concomitant]
  25. ULTRACET [Concomitant]
     Dosage: DOSE: 1-2 QID
  26. COLCHICINE [Concomitant]

REACTIONS (13)
  - AGGRESSION [None]
  - BLOOD CHLORIDE DECREASED [None]
  - CONSTIPATION [None]
  - DEAFNESS [None]
  - DIZZINESS [None]
  - DYSPEPSIA [None]
  - FATIGUE [None]
  - FLATULENCE [None]
  - HYPONATRAEMIA [None]
  - INFLUENZA LIKE ILLNESS [None]
  - MENTAL IMPAIRMENT [None]
  - NAUSEA [None]
  - VISION BLURRED [None]
